FAERS Safety Report 19839052 (Version 1)
Quarter: 2021Q3

REPORT INFORMATION
  Report Type: Spontaneous
  Country: US (occurrence: US)
  Receive Date: 20210916
  Receipt Date: 20210916
  Transmission Date: 20211014
  Serious: Yes (Other)
  Sender: FDA-Public Use
  Company Number: US-GLAXOSMITHKLINE-US2021GSK194561

PATIENT
  Sex: Female

DRUGS (8)
  1. RANITIDINE. [Suspect]
     Active Substance: RANITIDINE
     Dosage: 150 MG, BID
     Route: 065
     Dates: start: 201305, end: 202004
  2. RANITIDINE. [Suspect]
     Active Substance: RANITIDINE
     Indication: AUTOIMMUNE DISORDER
     Dosage: 150 MG, QD
     Route: 065
     Dates: start: 201305, end: 202004
  3. RANITIDINE. [Suspect]
     Active Substance: RANITIDINE
     Indication: AUTOIMMUNE DISORDER
     Dosage: 150 MG, QD
     Route: 065
     Dates: start: 201305, end: 202004
  4. ZANTAC [Suspect]
     Active Substance: RANITIDINE HYDROCHLORIDE
     Indication: AUTOIMMUNE DISORDER
     Dosage: 150 MG, QD
     Route: 065
     Dates: start: 201305, end: 202004
  5. ZANTAC [Suspect]
     Active Substance: RANITIDINE HYDROCHLORIDE
     Dosage: UNK, QD
     Route: 065
     Dates: start: 201305, end: 202004
  6. RANITIDINE CAPSULE [Suspect]
     Active Substance: RANITIDINE
     Indication: AUTOIMMUNE DISORDER
     Dosage: 150 MG, QD
     Route: 065
     Dates: start: 201305, end: 202004
  7. RANITIDINE CAPSULE [Suspect]
     Active Substance: RANITIDINE
     Dosage: UNK, QD
     Route: 065
     Dates: start: 201305, end: 202004
  8. RANITIDINE. [Suspect]
     Active Substance: RANITIDINE
     Dosage: 150 MG, BID
     Route: 065
     Dates: start: 201305, end: 202004

REACTIONS (1)
  - Breast cancer [Unknown]
